FAERS Safety Report 12775011 (Version 2)
Quarter: 2016Q4

REPORT INFORMATION
  Report Type: Spontaneous
  Country: FR (occurrence: FR)
  Receive Date: 20160923
  Receipt Date: 20161014
  Transmission Date: 20170207
  Serious: Yes (Other)
  Sender: FDA-Public Use
  Company Number: FR-VIIV HEALTHCARE LIMITED-FR2016GSK138534

PATIENT
  Age: 48 Year
  Sex: Male

DRUGS (5)
  1. ADIAZINE [Concomitant]
     Active Substance: SULFADIAZINE
     Indication: CEREBRAL TOXOPLASMOSIS
     Dosage: 4 G, 1D
     Route: 048
  2. TIVICAY [Concomitant]
     Active Substance: DOLUTEGRAVIR SODIUM
     Indication: HIV INFECTION
     Dosage: 100 MG, 1D
     Dates: start: 20160830
  3. COMBIVIR [Suspect]
     Active Substance: LAMIVUDINE\ZIDOVUDINE
     Indication: HIV INFECTION
     Dosage: 2 UNK, 1D
     Route: 048
     Dates: start: 20160829, end: 20160902
  4. MALOCIDE [Concomitant]
     Active Substance: PYRIMETHAMINE
     Indication: CEREBRAL TOXOPLASMOSIS
     Dosage: 25 MG, UNK
     Route: 048
     Dates: start: 20160825
  5. INEXIUM [Concomitant]
     Active Substance: ESOMEPRAZOLE
     Dosage: 40 MG, 1D

REACTIONS (1)
  - Reticulocyte count decreased [Recovered/Resolved]

NARRATIVE: CASE EVENT DATE: 20160831
